FAERS Safety Report 9468168 (Version 3)
Quarter: 2013Q3

REPORT INFORMATION
  Report Type: Report from Study
  Country: CA (occurrence: CA)
  Receive Date: 20130821
  Receipt Date: 20130904
  Transmission Date: 20140515
  Serious: Yes (Other)
  Sender: FDA-Public Use
  Company Number: CA-ABBOTT-13P-028-1133364-00

PATIENT
  Sex: Female
  Weight: 77.18 kg

DRUGS (5)
  1. HUMIRA [Suspect]
     Indication: CROHN^S DISEASE
     Route: 058
     Dates: start: 20130228, end: 201303
  2. WELLBUTRIN [Concomitant]
     Indication: DEPRESSION
     Route: 048
     Dates: start: 201303
  3. TOPAMAX [Concomitant]
     Indication: DEPRESSION
     Route: 048
     Dates: start: 2003
  4. CELEXA [Concomitant]
     Indication: DEPRESSION
     Route: 048
     Dates: start: 201303
  5. ZOPICLONE [Concomitant]
     Indication: SLEEP DISORDER THERAPY
     Route: 048
     Dates: start: 2003

REACTIONS (5)
  - Crohn^s disease [Not Recovered/Not Resolved]
  - Uterine leiomyoma [Recovered/Resolved]
  - Weight increased [Unknown]
  - Ovarian cyst [Recovered/Resolved]
  - Fatigue [Unknown]
